FAERS Safety Report 8747805 (Version 2)
Quarter: 2013Q4

REPORT INFORMATION
  Report Type: Report from Study
  Country: US (occurrence: US)
  Receive Date: 20120827
  Receipt Date: 20131105
  Transmission Date: 20140711
  Serious: Yes (Other)
  Sender: FDA-Public Use
  Company Number: US-009507513-1208USA007278

PATIENT
  Age: 40 Year
  Sex: Female
  Weight: 87.98 kg

DRUGS (10)
  1. VICTRELIS [Suspect]
     Indication: HEPATITIS
     Dosage: 800 MG, TID
     Route: 048
  2. REBETOL [Suspect]
     Indication: HEPATITIS C
     Dosage: 200 MG, UNK
  3. PEGINTERFERON ALFA-2A [Suspect]
     Indication: HEPATITIS C
     Dosage: 180 MICROGRAMS/METER
  4. MELATONIN [Concomitant]
  5. LAMOTRIGINE [Concomitant]
  6. CLONAZEPAM [Concomitant]
  7. ZOFRAN [Concomitant]
  8. NEXIUM [Concomitant]
  9. HYDROCODONE BITARTRATE [Concomitant]
  10. FISH OIL [Concomitant]

REACTIONS (1)
  - Bronchitis [Unknown]
